FAERS Safety Report 8822559 (Version 1)
Quarter: 2012Q4

REPORT INFORMATION
  Report Type: 
  Country: US (occurrence: US)
  Receive Date: 20121003
  Receipt Date: 20121003
  Transmission Date: 20130627
  Serious: Yes (Death)
  Sender: FDA-Public Use
  Company Number: US-B.I. PHARMACEUTICALS,INC./RIDGEFIELD-2012-EU-04815GD

PATIENT
  Age: 51 Year

DRUGS (2)
  1. BISACODYL [Suspect]
     Route: 048
  2. AMITRIPTYLINE [Suspect]
     Route: 048

REACTIONS (1)
  - Completed suicide [Fatal]
